FAERS Safety Report 15067026 (Version 7)
Quarter: 2019Q3

REPORT INFORMATION
  Report Type: Report from Study
  Country: CA (occurrence: CA)
  Receive Date: 20180626
  Receipt Date: 20190826
  Transmission Date: 20191004
  Serious: Yes (Hospitalization, Other)
  Sender: FDA-Public Use
  Company Number: PHHY2017CA030151

PATIENT
  Age: 70 Year
  Sex: Female

DRUGS (5)
  1. METFORMIN [Suspect]
     Active Substance: METFORMIN HYDROCHLORIDE
     Indication: BLOOD GLUCOSE INCREASED
  2. SANDOSTATIN LAR DEPOT [Suspect]
     Active Substance: OCTREOTIDE ACETATE
     Indication: NEUROENDOCRINE TUMOUR
     Dosage: 30 MG, QMO (EVERY 4 WEEKS)
     Route: 030
     Dates: start: 20160712
  3. CHAMPIX [Concomitant]
     Active Substance: VARENICLINE TARTRATE
     Indication: NICOTINE DEPENDENCE
     Dosage: UNK
     Route: 065
     Dates: start: 20181107
  4. METFORMIN [Suspect]
     Active Substance: METFORMIN HYDROCHLORIDE
     Indication: DIABETES MELLITUS
     Dosage: 500 MG, BID
     Route: 065
     Dates: start: 201706
  5. SANDOSTATIN LAR DEPOT [Suspect]
     Active Substance: OCTREOTIDE ACETATE
     Indication: CARCINOID SYNDROME
     Dosage: 30MG, Q4W
     Route: 030
     Dates: start: 20190307

REACTIONS (15)
  - Diabetes mellitus [Unknown]
  - Visual impairment [Unknown]
  - Urinary tract infection [Unknown]
  - Metastases to spine [Unknown]
  - Nausea [Unknown]
  - Corneal disorder [Unknown]
  - Blood pressure increased [Unknown]
  - Eye irritation [Unknown]
  - Renal failure [Unknown]
  - Blood pressure systolic increased [Unknown]
  - Blood glucose increased [Unknown]
  - Vision blurred [Unknown]
  - Weight increased [Unknown]
  - Headache [Unknown]
  - Flatulence [Recovering/Resolving]

NARRATIVE: CASE EVENT DATE: 20170222
